FAERS Safety Report 21390179 (Version 1)
Quarter: 2022Q3

REPORT INFORMATION
  Report Type: Spontaneous
  Country: DE (occurrence: DE)
  Receive Date: 20220929
  Receipt Date: 20220929
  Transmission Date: 20221027
  Serious: Yes (Hospitalization, Other)
  Sender: FDA-Public Use
  Company Number: DE-ADRED-08406-02

PATIENT
  Age: 81 Year
  Sex: Female
  Weight: 109 kg

DRUGS (8)
  1. INSULIN GLARGINE [Suspect]
     Active Substance: INSULIN GLARGINE
     Dosage: 40 IE, QD, 0-0-1-0
  2. LATANOPROST [Concomitant]
     Active Substance: LATANOPROST
     Dosage: 0-0-0-1
     Route: 031
  3. TORSEMIDE [Concomitant]
     Active Substance: TORSEMIDE
     Dosage: 10 MG, QD, 1-0-0-0
  4. SIMVASTATIN [Concomitant]
     Active Substance: SIMVASTATIN
     Dosage: 10 MG, QD, 0-0-1-0
  5. BISOPROLOL [Concomitant]
     Active Substance: BISOPROLOL
     Dosage: 1.25 MG, BID, 1-0-1-0
  6. ALLOPURINOL [Concomitant]
     Active Substance: ALLOPURINOL
     Dosage: 300 MG, QD, 0-0-1-0
  7. ENALAPRIL [Concomitant]
     Active Substance: ENALAPRIL
     Dosage: 20 MG, QD,1-0-0-0
  8. BRINZOLAMIDE [Concomitant]
     Active Substance: BRINZOLAMIDE
     Dosage: BID, 1-0-1-0
     Route: 031

REACTIONS (12)
  - Arrhythmia [Unknown]
  - Electrolyte imbalance [Unknown]
  - Hyponatraemia [Unknown]
  - Condition aggravated [Unknown]
  - Renal impairment [Unknown]
  - General physical health deterioration [Unknown]
  - Fall [Unknown]
  - Urinary tract infection [Unknown]
  - Product monitoring error [Unknown]
  - Hyperglycaemia [Unknown]
  - Oedema peripheral [Unknown]
  - Diabetes mellitus inadequate control [Unknown]
